FAERS Safety Report 18476262 (Version 4)
Quarter: 2022Q1

REPORT INFORMATION
  Report Type: Spontaneous
  Country: US (occurrence: US)
  Receive Date: 20201106
  Receipt Date: 20220310
  Transmission Date: 20220423
  Serious: No
  Sender: FDA-Public Use
  Company Number: US-PFIZER INC-2020429026

PATIENT
  Age: 55 Year
  Sex: Male

DRUGS (4)
  1. XELJANZ XR [Suspect]
     Active Substance: TOFACITINIB CITRATE
     Indication: Rheumatoid arthritis
     Dosage: 11 MG, DAILY
     Route: 048
     Dates: start: 20201020
  2. XELJANZ XR [Suspect]
     Active Substance: TOFACITINIB CITRATE
     Dosage: 11 MG, DAILY
     Route: 048
     Dates: start: 202105
  3. ZORVOLEX [Concomitant]
     Active Substance: DICLOFENAC
     Dosage: UNK
  4. LEFLUNOMIDE [Concomitant]
     Active Substance: LEFLUNOMIDE
     Dosage: UNK

REACTIONS (6)
  - Dyspepsia [Unknown]
  - Headache [Unknown]
  - Lip blister [Recovered/Resolved]
  - Product dose omission issue [Unknown]
  - Fatigue [Recovered/Resolved]
  - Muscle discomfort [Recovered/Resolved]

NARRATIVE: CASE EVENT DATE: 20200101
